FAERS Safety Report 14450703 (Version 1)
Quarter: 2018Q1

REPORT INFORMATION
  Report Type: Spontaneous
  Country: US (occurrence: US)
  Receive Date: 20180129
  Receipt Date: 20180129
  Transmission Date: 20180509
  Serious: Yes (Hospitalization)
  Sender: FDA-Public Use
  Company Number: US-UNITED THERAPEUTICS-UNT-2018-000002

PATIENT
  Age: 57 Year
  Sex: Male
  Weight: 72.56 kg

DRUGS (2)
  1. REMODULIN [Suspect]
     Active Substance: TREPROSTINIL
     Dosage: 0.015 ?G/KG, CONTINUING
     Route: 041
  2. REMODULIN [Suspect]
     Active Substance: TREPROSTINIL
     Indication: PULMONARY HYPERTENSION
     Dosage: 0.01 ?G/KG, CONTINUING
     Route: 041
     Dates: start: 20171027

REACTIONS (8)
  - Neck pain [Unknown]
  - Nausea [Unknown]
  - Pain [Unknown]
  - Pain in jaw [Unknown]
  - Joint swelling [Unknown]
  - Headache [Unknown]
  - Dyspepsia [Unknown]
  - Flatulence [Unknown]

NARRATIVE: CASE EVENT DATE: 20180101
